FAERS Safety Report 4479566-1 (Version None)
Quarter: 2004Q4

REPORT INFORMATION
  Report Type: 
  Country: None (occurrence: None)
  Receive Date: 20041015
  Receipt Date: 20041001
  Transmission Date: 20050328
  Serious: Yes (Hospitalization)
  Sender: FDA-Public Use
  Company Number: US013946

PATIENT
  Age: 20 Year
  Sex: Female

DRUGS (7)
  1. GABITRIL [Suspect]
     Indication: BIPOLAR I DISORDER
     Dosage: 4 MG BID ORAL
     Route: 048
     Dates: start: 20040901
  2. LITHIUM [Concomitant]
  3. PAMELOR [Concomitant]
  4. ABILIFY [Concomitant]
  5. ATIVAN [Concomitant]
  6. CELEXA [Concomitant]
  7. SYNTHROID [Concomitant]

REACTIONS (1)
  - NEPHROTIC SYNDROME [None]
